FAERS Safety Report 5418209-7 (Version None)
Quarter: 2007Q3

REPORT INFORMATION
  Report Type: 
  Country: None (occurrence: None)
  Receive Date: 20070817
  Receipt Date: 20070808
  Transmission Date: 20080115
  Serious: Yes (Death)
  Sender: FDA-Public Use
  Company Number: JP-ROCHE-491604

PATIENT
  Age: 32 Year
  Sex: Male
  Weight: 73 kg

DRUGS (2)
  1. TAMIFLU [Suspect]
     Route: 048
     Dates: start: 20070328, end: 20070329
  2. MAO-TO [Concomitant]
     Indication: DRUG USE FOR UNKNOWN INDICATION
     Route: 048
     Dates: start: 20070328, end: 20070328

REACTIONS (10)
  - ADENOIDITIS [None]
  - BRAIN OEDEMA [None]
  - BRONCHITIS [None]
  - CARDIO-RESPIRATORY ARREST [None]
  - HEPATIC CONGESTION [None]
  - PANCREATITIS [None]
  - PULMONARY CONGESTION [None]
  - RENAL DISORDER [None]
  - SHOCK [None]
  - SUDDEN DEATH [None]
